FAERS Safety Report 20265564 (Version 1)
Quarter: 2021Q4

REPORT INFORMATION
  Report Type: Spontaneous
  Country: US (occurrence: None)
  Receive Date: 20211231
  Receipt Date: 20211231
  Transmission Date: 20220303
  Serious: Yes (Other)
  Sender: FDA-Public Use
  Company Number: None

PATIENT
  Age: 43 Year
  Sex: Female
  Weight: 83.7 kg

DRUGS (3)
  1. METHOTREXATE [Suspect]
     Active Substance: METHOTREXATE
     Indication: Psoriasis
     Dosage: FREQUENCY : WEEKLY;?
     Route: 048
     Dates: start: 20210922, end: 20211020
  2. FOLIC ACID [Concomitant]
     Active Substance: FOLIC ACID
     Dates: start: 20210922, end: 20211020
  3. HUMIRA [Concomitant]
     Active Substance: ADALIMUMAB
     Dates: start: 20210630

REACTIONS (4)
  - Tinnitus [None]
  - Deafness unilateral [None]
  - Blood cholesterol increased [None]
  - Blood glucose increased [None]

NARRATIVE: CASE EVENT DATE: 20211019
